FAERS Safety Report 5767067-X (Version None)
Quarter: 2008Q2

REPORT INFORMATION
  Report Type: 
  Country: None (occurrence: None)
  Receive Date: 20080612
  Receipt Date: 20080610
  Transmission Date: 20081010
  Serious: Yes (Hospitalization)
  Sender: FDA-Public Use
  Company Number: DE-AVENTIS-200811558DE

PATIENT
  Sex: Male

DRUGS (1)
  1. CLEXANE [Suspect]
     Dosage: DOSE: NOT REPORTED
     Route: 063
     Dates: start: 20071120, end: 20080201

REACTIONS (2)
  - DRUG EXPOSURE DURING PREGNANCY [None]
  - RENAL DISORDER [None]
